FAERS Safety Report 18358476 (Version 2)
Quarter: 2020Q4

REPORT INFORMATION
  Report Type: Spontaneous
  Country: GB (occurrence: GB)
  Receive Date: 20201008
  Receipt Date: 20201013
  Transmission Date: 20210114
  Serious: Yes (Other)
  Sender: FDA-Public Use
  Company Number: GB-PFIZER INC-2020382631

PATIENT
  Age: 34 Year
  Sex: Male
  Weight: 69 kg

DRUGS (5)
  1. IBUPROFEN. [Suspect]
     Active Substance: IBUPROFEN
     Dosage: 200 MG
     Dates: start: 20200905
  2. OPTREX [HAMAMELIS VIRGINIANA] [Concomitant]
     Dosage: UNK
     Dates: start: 20200601
  3. FEXOFENADINE [Concomitant]
     Active Substance: FEXOFENADINE HYDROCHLORIDE
     Dosage: 1 DF, 1X/DAY
     Dates: start: 20200601
  4. PARACETAMOL [Concomitant]
     Active Substance: ACETAMINOPHEN
     Dosage: 2 DF
     Dates: start: 20200905
  5. JEXT [Concomitant]
     Active Substance: EPINEPHRINE BITARTRATE
     Dosage: UNK
     Dates: start: 20200731, end: 20200828

REACTIONS (2)
  - Skin texture abnormal [Unknown]
  - Nasopharyngitis [Recovered/Resolved]

NARRATIVE: CASE EVENT DATE: 20200905
